FAERS Safety Report 24743785 (Version 1)
Quarter: 2024Q4

REPORT INFORMATION
  Report Type: Spontaneous
  Country: FR (occurrence: FR)
  Receive Date: 20241217
  Receipt Date: 20241217
  Transmission Date: 20250115
  Serious: Yes (Life-Threatening)
  Sender: RANBAXY
  Company Number: FR-SUN PHARMACEUTICAL INDUSTRIES LTD-2024RR-484509

PATIENT
  Age: 14 Year
  Sex: Male
  Weight: 59 kg

DRUGS (2)
  1. MORPHINE [Suspect]
     Active Substance: MORPHINE
     Indication: Sickle cell anaemia with crisis
     Dosage: 40?G/KG/H
     Route: 040
     Dates: start: 20240930, end: 20241002
  2. BETAMETHASONE [Suspect]
     Active Substance: BETAMETHASONE
     Indication: Sickle cell anaemia with crisis
     Dosage: 6MG EVERY MORNING FOR 5 DAYS
     Route: 048
     Dates: start: 20240926, end: 20240930

REACTIONS (1)
  - Acute chest syndrome [Recovered/Resolved]

NARRATIVE: CASE EVENT DATE: 20241001
